FAERS Safety Report 8790428 (Version 1)
Quarter: 2012Q4

REPORT INFORMATION
  Report Type: Spontaneous
  Country: US (occurrence: None)
  Receive Date: 20120911
  Receipt Date: 20120911
  Transmission Date: 20130627
  Serious: Yes (Life-Threatening, Disabling, Other)
  Sender: FDA-Public Use
  Company Number: None

PATIENT
  Age: 23 Year
  Sex: Female
  Weight: 61.24 kg

DRUGS (1)
  1. LOESTRIN 24 FE [Suspect]
     Indication: BIRTH CONTROL
     Dosage: 1 pil
     Route: 048
     Dates: start: 20100710, end: 20120201

REACTIONS (5)
  - Gait disturbance [None]
  - Hemiparesis [None]
  - Clumsiness [None]
  - Neurofibromatosis [None]
  - Spinal column stenosis [None]
